FAERS Safety Report 25914409 (Version 1)
Quarter: 2025Q4

REPORT INFORMATION
  Report Type: Spontaneous
  Country: US (occurrence: US)
  Receive Date: 20251013
  Receipt Date: 20251013
  Transmission Date: 20260118
  Serious: No
  Sender: PFIZER
  Company Number: US-PFIZER INC-PV202500121140

PATIENT

DRUGS (1)
  1. STERILE WATER [Suspect]
     Active Substance: WATER
     Dosage: UNK

REACTIONS (1)
  - Burning sensation [Unknown]
